FAERS Safety Report 8556332-9 (Version None)
Quarter: 2012Q3

REPORT INFORMATION
  Report Type: 
  Country: None (occurrence: None)
  Receive Date: 20120726
  Receipt Date: 20120726
  Transmission Date: 20120928
  Serious: No
  Sender: FDA-Public Use
  Company Number: None

PATIENT
  Age: 65 Year
  Sex: Female
  Weight: 179.1708 kg

DRUGS (1)
  1. LOVENOX [Suspect]
     Indication: THROMBOSIS PROPHYLAXIS
     Dosage: INTRAVENOUS
     Route: 042
     Dates: start: 20120201, end: 20120207

REACTIONS (19)
  - ARRHYTHMIA [None]
  - FLUID RETENTION [None]
  - HEART RATE INCREASED [None]
  - MALAISE [None]
  - NAUSEA [None]
  - DYSPNOEA [None]
  - PALLOR [None]
  - RESPIRATORY FAILURE [None]
  - DIARRHOEA [None]
  - ORGAN FAILURE [None]
  - HEPATIC FAILURE [None]
  - DIZZINESS [None]
  - HEADACHE [None]
  - RETROPERITONEAL HAEMORRHAGE [None]
  - RENAL FAILURE [None]
  - BLOOD PRESSURE ABNORMAL [None]
  - ASTHENIA [None]
  - VOMITING [None]
  - SENSATION OF PRESSURE [None]
